FAERS Safety Report 4773815-8 (Version None)
Quarter: 2005Q3

REPORT INFORMATION
  Report Type: 
  Country: None (occurrence: None)
  Receive Date: 20050920
  Receipt Date: 20010326
  Transmission Date: 20060218
  Serious: Yes (Hospitalization)
  Sender: FDA-Public Use
  Company Number: IT-GLAXOSMITHKLINE-B0102579A

PATIENT
  Age: 75 Year
  Sex: Male
  Weight: 64.5 kg

DRUGS (4)
  1. ZANTAC [Suspect]
     Dosage: 150MG TWICE PER DAY
     Route: 048
     Dates: start: 20010226, end: 20010303
  2. GASTRO GEL [Concomitant]
     Indication: DYSPEPSIA
     Dates: start: 20010226
  3. DOMPERIDONE [Concomitant]
     Dosage: .25SP TWICE PER DAY
     Route: 048
     Dates: start: 20010226, end: 20010303
  4. SULGLYCOTIDE [Concomitant]
     Dosage: 200MG TWICE PER DAY
     Route: 048
     Dates: start: 20010226, end: 20010303

REACTIONS (8)
  - BLOOD BILIRUBIN INCREASED [None]
  - CHROMATURIA [None]
  - EXCORIATION [None]
  - FAECES PALE [None]
  - HEPATOMEGALY [None]
  - JAUNDICE CHOLESTATIC [None]
  - OCULAR ICTERUS [None]
  - TRANSAMINASES INCREASED [None]
